FAERS Safety Report 5378182-7 (Version None)
Quarter: 2007Q3

REPORT INFORMATION
  Report Type: 
  Country: None (occurrence: None)
  Receive Date: 20070705
  Receipt Date: 20070627
  Transmission Date: 20080115
  Serious: Yes (Hospitalization)
  Sender: FDA-Public Use
  Company Number: IT-JNJFOC-20070606138

PATIENT
  Age: 72 Year
  Sex: Female

DRUGS (1)
  1. LEVOFLOXACIN [Suspect]
     Indication: CYSTITIS
     Route: 065

REACTIONS (2)
  - BLISTER [None]
  - GENERALISED OEDEMA [None]
